FAERS Safety Report 9368986 (Version 3)
Quarter: 2013Q4

REPORT INFORMATION
  Report Type: Spontaneous
  Country: BR (occurrence: None)
  Receive Date: 20130621
  Receipt Date: 20131030
  Transmission Date: 20140711
  Serious: Yes (Hospitalization, Other)
  Sender: FDA-Public Use
  Company Number: AUR-APL-2013-05123

PATIENT
  Age: 60 Year
  Sex: Female
  Weight: 56 kg

DRUGS (14)
  1. ATENOLOL (ATENOLOL) [Suspect]
     Indication: AMERICAN TRYPANOSOMIASIS
     Dosage: 50 MG (25 MG, 2 IN 1 D), ORAL
     Route: 048
     Dates: end: 201306
  2. ATENOLOL (ATENOLOL) [Suspect]
     Indication: HYPERTENSION
     Dosage: 50 MG (25 MG, 2 IN 1 D), ORAL
     Route: 048
     Dates: end: 201306
  3. OMEPRAZOLE (OMEPRAZOLE) [Suspect]
     Indication: GASTROOESOPHAGEAL REFLUX DISEASE
     Dosage: 1 D
     Route: 048
     Dates: end: 201308
  4. SELOZOK [Suspect]
     Indication: PRODUCT USED FOR UNKNOWN INDICATION
     Dosage: 50 MG I IN 12 HR)
     Route: 048
     Dates: start: 201306, end: 201308
  5. SELOZOK [Suspect]
     Indication: ARRHYTHMIA
     Dosage: 50 MG I IN 12 HR)
     Route: 048
     Dates: start: 201306, end: 201308
  6. SELOZOK [Suspect]
     Indication: AMERICAN TRYPANOSOMIASIS
     Dosage: 50 MG I IN 12 HR)
     Route: 048
     Dates: start: 201306, end: 201308
  7. LOPIGREL [Suspect]
     Indication: ANTICOAGULANT THERAPY
     Route: 048
     Dates: end: 201308
  8. OLANZAPINE (OLANZAPINE) [Concomitant]
  9. SERTRALINE (SERTRALINE) [Concomitant]
  10. DIAZEPAM (DIAZEPAM) [Concomitant]
  11. BENICAR (OLMESARTAN MEDOXOMIL) [Concomitant]
  12. COVERSYL (PERINDOPRIL ERBUMINE) [Concomitant]
  13. ZIPROL (PANTOPRAZOLE SODIUM SESQUIHYDRATE) [Concomitant]
  14. ATENOLOL (ATENOLOL) [Suspect]
     Indication: ARRHYTHMIA
     Dosage: 50 MG (25 MG, 2 IN 1 D), ORAL
     Route: 048
     Dates: end: 201306

REACTIONS (2)
  - Off label use [None]
  - Hypertension [None]
